FAERS Safety Report 8029553-1 (Version None)
Quarter: 2012Q1

REPORT INFORMATION
  Report Type: 
  Country: None (occurrence: None)
  Receive Date: 20120109
  Receipt Date: 20120104
  Transmission Date: 20120608
  Serious: No
  Sender: FDA-Public Use
  Company Number: US-PFIZER INC-2012002735

PATIENT
  Age: 68 Year
  Sex: Female
  Weight: 57.6 kg

DRUGS (2)
  1. PREMPRO [Suspect]
     Indication: OSTEOPOROSIS
  2. PREMPRO [Suspect]
     Indication: HOT FLUSH
     Dosage: 0.3/1.5 MG, DAILY
     Route: 048

REACTIONS (1)
  - ASTHMA [None]
